FAERS Safety Report 9240563 (Version 2)
Quarter: 2013Q2

REPORT INFORMATION
  Report Type: Spontaneous
  Country: US (occurrence: None)
  Receive Date: 20130417
  Receipt Date: 20130605
  Transmission Date: 20140414
  Serious: No
  Sender: FDA-Public Use
  Company Number: AEUSA201200546

PATIENT
  Age: 6 Month
  Sex: Female
  Weight: 9 kg

DRUGS (1)
  1. GAMASTAN [Suspect]
     Indication: ANTIVIRAL PROPHYLAXIS
     Route: 030
     Dates: start: 20121202, end: 20121202

REACTIONS (2)
  - Drug administration error [None]
  - Incorrect dose administered [None]
